FAERS Safety Report 21223230 (Version 3)
Quarter: 2022Q3

REPORT INFORMATION
  Report Type: Spontaneous
  Country: US (occurrence: US)
  Receive Date: 20220817
  Receipt Date: 20220906
  Transmission Date: 20221027
  Serious: Yes (Hospitalization, Other)
  Sender: FDA-Public Use
  Company Number: US-BAYER-2022A108771

PATIENT
  Age: 31 Year
  Sex: Male

DRUGS (4)
  1. KOGENATE FS [Suspect]
     Active Substance: ANTIHEMOPHILIC FACTOR, HUMAN RECOMBINANT
     Dosage: 2400 IU, Q3WK AND PRN
  2. KOGENATE FS [Suspect]
     Active Substance: ANTIHEMOPHILIC FACTOR, HUMAN RECOMBINANT
     Dosage: 1 DF AND EXTRA DOSE FOR THE RIGHT KNEE BLEED TREATMENT
     Dates: start: 20220714, end: 20220714
  3. KOGENATE FS [Suspect]
     Active Substance: ANTIHEMOPHILIC FACTOR, HUMAN RECOMBINANT
     Dosage: 1 DF AND EXTRA DOSE FOR THE RIGHT KNEE BLEED TREATMENT
     Dates: start: 20220715, end: 20220715
  4. KOGENATE FS [Suspect]
     Active Substance: ANTIHEMOPHILIC FACTOR, HUMAN RECOMBINANT
     Dosage: UNK (3 EXTRA DOSES TO TREAT THE RIGHT KNEE BLEEDING)
     Dates: start: 20220807

REACTIONS (4)
  - Haemarthrosis [Recovered/Resolved]
  - Haemarthrosis [None]
  - Arthralgia [None]
  - Arthralgia [Recovered/Resolved]

NARRATIVE: CASE EVENT DATE: 20220711
